FAERS Safety Report 4380839-1 (Version None)
Quarter: 2004Q2

REPORT INFORMATION
  Report Type: 
  Country: None (occurrence: None)
  Receive Date: 20040616
  Receipt Date: 20040531
  Transmission Date: 20050107
  Serious: Yes (Other)
  Sender: FDA-Public Use
  Company Number: 2004216814AU

PATIENT
  Age: 71 Year
  Sex: Male

DRUGS (15)
  1. PARECOXIB SODIUM [Suspect]
     Indication: PAIN
     Dosage: 40 MG, QD, IV
     Route: 042
     Dates: start: 20030106, end: 20030120
  2. METRONIDAZOLE IV INFUSION (METRONIDAZOLE, METRONIDAZOLE) SOLUTION, STE [Suspect]
     Indication: PROPHYLAXIS
     Dosage: 1 G, QD, IV
     Route: 042
     Dates: start: 20030115, end: 20030121
  3. LOMOTIL (DIPHENOXYLATE HYDROCHLORIDE, ATROPINE SULFATE, DIPHENOXYLATE [Suspect]
     Indication: DIARRHOEA
     Dosage: 400 MG, QD, ORAL
     Route: 048
     Dates: start: 20030120, end: 20030121
  4. CEFTRIAXONE [Suspect]
     Indication: PROPHYLAXIS
     Dosage: SEE IMAGE
     Route: 042
     Dates: start: 20030115, end: 20030121
  5. CEFTRIAXONE [Suspect]
     Indication: PROPHYLAXIS
     Dosage: SEE IMAGE
     Route: 042
     Dates: start: 20030120, end: 20030121
  6. GENTAMICIN [Suspect]
     Indication: PROPHYLAXIS
     Dosage: 160 MG, QD, IV
     Route: 042
     Dates: start: 20030117, end: 20030120
  7. AMOXICILLIN SODIUM (AMOXICILLIN SODIUM) [Suspect]
     Indication: PROPHYLAXIS
     Dosage: 4 G, QD, IV
     Route: 042
     Dates: start: 20030116, end: 20030120
  8. ACETAMINOPHEN [Concomitant]
  9. HEPARIN [Concomitant]
  10. PRAVACHOL [Concomitant]
  11. TEGRETOL [Concomitant]
  12. OXYCODONE HCL [Concomitant]
  13. MORPHINE [Concomitant]
  14. MAXOLON [Concomitant]
  15. TRAMAL (TRAMADOL HYDROCHLORIDE) [Concomitant]

REACTIONS (1)
  - RENAL FAILURE ACUTE [None]
